FAERS Safety Report 8215202-6 (Version None)
Quarter: 2012Q1

REPORT INFORMATION
  Report Type: 
  Country: None (occurrence: None)
  Receive Date: 20120316
  Receipt Date: 20120302
  Transmission Date: 20120608
  Serious: Yes (Hospitalization)
  Sender: FDA-Public Use
  Company Number: DE-MYLANLABS-2012S1005608

PATIENT
  Age: 35 Year
  Sex: Female
  Weight: 72 kg

DRUGS (4)
  1. LEVOTHYROXINE SODIUM [Suspect]
     Route: 048
     Dates: start: 20100803, end: 20110301
  2. METFORMIN HYDROCHLORIDE [Suspect]
     Indication: POLYCYSTIC OVARIES
     Route: 048
     Dates: start: 20100803, end: 20110111
  3. LEVOTHYROXINE SODIUM [Suspect]
     Indication: HYPOTHYROIDISM
     Route: 048
     Dates: start: 20110301, end: 20110503
  4. DEKRISTOL [Suspect]
     Indication: VITAMIN D DEFICIENCY
     Route: 048
     Dates: start: 20100803, end: 20110111

REACTIONS (2)
  - MATERNAL EXPOSURE DURING PREGNANCY [None]
  - GESTATIONAL DIABETES [None]
